FAERS Safety Report 20796700 (Version 5)
Quarter: 2022Q4

REPORT INFORMATION
  Report Type: Report from Study
  Country: US (occurrence: US)
  Receive Date: 20220506
  Receipt Date: 20221011
  Transmission Date: 20230112
  Serious: Yes (Other)
  Sender: FDA-Public Use
  Company Number: US-TAKEDA-2021TUS052575

PATIENT
  Sex: Female
  Weight: 70 kg

DRUGS (26)
  1. HUMAN IMMUNOGLOBULIN G [Suspect]
     Active Substance: HUMAN IMMUNOGLOBULIN G
     Indication: Primary immunodeficiency syndrome
     Dosage: 20 GRAM, Q2WEEKS
     Route: 058
     Dates: start: 20180612
  2. HUMAN IMMUNOGLOBULIN G [Suspect]
     Active Substance: HUMAN IMMUNOGLOBULIN G
     Indication: Combined immunodeficiency
     Dosage: 25 GRAM, Q2WEEKS
     Route: 058
     Dates: start: 20180612
  3. HUMAN IMMUNOGLOBULIN G [Suspect]
     Active Substance: HUMAN IMMUNOGLOBULIN G
     Dosage: 25 GRAM, Q2WEEKS
     Route: 058
     Dates: start: 20180709
  4. ACETAMINOPHEN [Concomitant]
     Active Substance: ACETAMINOPHEN
  5. DIPHENHYDRAMINE [Concomitant]
     Active Substance: DIPHENHYDRAMINE
  6. LIDOCAINE\PRILOCAINE [Concomitant]
     Active Substance: LIDOCAINE\PRILOCAINE
  7. EPINEPHRINE [Concomitant]
     Active Substance: EPINEPHRINE
  8. Lmx [Concomitant]
  9. ZANTAC [Concomitant]
     Active Substance: RANITIDINE HYDROCHLORIDE
  10. MAGNESIUM [Concomitant]
     Active Substance: MAGNESIUM
  11. SINGULAIR [Concomitant]
     Active Substance: MONTELUKAST SODIUM
  12. DYMISTA [Concomitant]
     Active Substance: AZELASTINE HYDROCHLORIDE\FLUTICASONE PROPIONATE
  13. ZYRTEC [Concomitant]
     Active Substance: CETIRIZINE HYDROCHLORIDE
  14. DIETARY SUPPLEMENT\PROBIOTICS [Concomitant]
     Active Substance: DIETARY SUPPLEMENT\PROBIOTICS
  15. XYZAL [Concomitant]
     Active Substance: LEVOCETIRIZINE DIHYDROCHLORIDE
  16. BIOFLAVONOIDS [Concomitant]
     Active Substance: BIOFLAVONOIDS
  17. VITAMIN D2 [Concomitant]
     Active Substance: ERGOCALCIFEROL
  18. SERTRALINE [Concomitant]
     Active Substance: SERTRALINE HYDROCHLORIDE
     Route: 065
  19. UNSPECIFIED INGREDIENT [Concomitant]
     Active Substance: UNSPECIFIED INGREDIENT
  20. SERTRALINE HYDROCHLORIDE [Concomitant]
     Active Substance: SERTRALINE HYDROCHLORIDE
  21. VITAMIN D [Concomitant]
     Active Substance: VITAMIN D NOS
  22. PROBIOTICS NOS [Concomitant]
     Active Substance: PROBIOTICS NOS
  23. ORENCIA [Concomitant]
     Active Substance: ABATACEPT
  24. CELEBREX [Concomitant]
     Active Substance: CELECOXIB
  25. ESTRADIOL [Concomitant]
     Active Substance: ESTRADIOL
  26. FAMOTIDINE [Concomitant]
     Active Substance: FAMOTIDINE

REACTIONS (9)
  - Rheumatoid arthritis [Unknown]
  - Sinusitis [Unknown]
  - Injection site bruising [Unknown]
  - Injection site discharge [Unknown]
  - Injection site injury [Unknown]
  - Drug hypersensitivity [Unknown]
  - Infusion site pruritus [Unknown]
  - Injection site pain [Unknown]
  - Rash [Unknown]
